FAERS Safety Report 5283201-2 (Version None)
Quarter: 2007Q2

REPORT INFORMATION
  Report Type: 
  Country: None (occurrence: None)
  Receive Date: 20070402
  Receipt Date: 20070327
  Transmission Date: 20071010
  Serious: Yes (Other)
  Sender: FDA-Public Use
  Company Number: GB-GLAXOSMITHKLINE-B0450559A

PATIENT
  Age: 7 Year
  Sex: Male

DRUGS (2)
  1. LAMICTAL [Suspect]
     Indication: EPILEPSY
     Dates: start: 20051201
  2. TOPAMAX [Concomitant]
     Indication: EPILEPSY

REACTIONS (10)
  - COGNITIVE DISORDER [None]
  - CONVULSION [None]
  - DECREASED INTEREST [None]
  - DRUG INEFFECTIVE [None]
  - DYSKINESIA [None]
  - ILL-DEFINED DISORDER [None]
  - MUSCULAR WEAKNESS [None]
  - MYOCLONUS [None]
  - RESTLESSNESS [None]
  - SPEECH DISORDER [None]
